FAERS Safety Report 7765438-3 (Version None)
Quarter: 2011Q3

REPORT INFORMATION
  Report Type: 
  Country: None (occurrence: None)
  Receive Date: 20110916
  Receipt Date: 20110912
  Transmission Date: 20111222
  Serious: Yes (Hospitalization)
  Sender: FDA-Public Use
  Company Number: DKLU1073012

PATIENT
  Age: 10 Year
  Sex: Male

DRUGS (3)
  1. ELSPAR [Suspect]
     Indication: ACUTE LYMPHOCYTIC LEUKAEMIA
     Dosage: 7800 IU INTERNATIONAL UNIT(S), INTRAMUSCULAR
     Route: 030
     Dates: start: 20110228, end: 20110720
  2. SPRYCEL [Suspect]
     Indication: ACUTE LYMPHOCYTIC LEUKAEMIA
     Dosage: 1120 MG MILLIGRAM(S), ORAL
     Route: 048
     Dates: start: 20110228, end: 20110801
  3. CYTARABINE [Suspect]
     Indication: ACUTE LYMPHOCYTIC LEUKAEMIA
     Dosage: 3900 MG MILLIGRAM(S), INTRAVENOUS (NOT OTHERWISE SPECIFIED)
     Route: 042
     Dates: start: 20110228, end: 20110719

REACTIONS (3)
  - CAECITIS [None]
  - FEBRILE NEUTROPENIA [None]
  - ABDOMINAL PAIN [None]
